FAERS Safety Report 5114023-0 (Version None)
Quarter: 2006Q3

REPORT INFORMATION
  Report Type: 
  Country: None (occurrence: None)
  Receive Date: 20060921
  Receipt Date: 20060909
  Transmission Date: 20061208
  Serious: Yes (Life-Threatening, Other)
  Sender: FDA-Public Use
  Company Number: FABR-11633

PATIENT
  Age: 46 Year
  Sex: Male
  Weight: 60.8 kg

DRUGS (6)
  1. FABRAZYME [Suspect]
     Indication: FABRY'S DISEASE
     Dosage: 70 MG Q2WKS IV
     Route: 042
     Dates: start: 20030724, end: 20060727
  2. CELLCEPT [Concomitant]
  3. DELTASONE [Concomitant]
  4. LOPRESSOR [Concomitant]
  5. PRAVACHOL [Concomitant]
  6. BACTRIM [Concomitant]

REACTIONS (1)
  - PROSTATE CANCER [None]
